FAERS Safety Report 19258707 (Version 1)
Quarter: 2021Q2

REPORT INFORMATION
  Report Type: Spontaneous
  Country: US (occurrence: US)
  Receive Date: 20210514
  Receipt Date: 20210514
  Transmission Date: 20210717
  Serious: Yes (Other)
  Sender: FDA-Public Use
  Company Number: None

PATIENT
  Age: 88 Year
  Sex: Female
  Weight: 53.37 kg

DRUGS (7)
  1. MEDROL DP [Concomitant]
  2. LECITHIN [Concomitant]
     Active Substance: LECITHIN
  3. VITAMIN D [Concomitant]
     Active Substance: VITAMIN D NOS
  4. IMITREX [Concomitant]
     Active Substance: SUMATRIPTAN SUCCINATE
  5. VITAMIN B12 [Concomitant]
     Active Substance: CYANOCOBALAMIN
  6. ADVIL [Concomitant]
     Active Substance: IBUPROFEN
  7. LEUKERAN [Suspect]
     Active Substance: CHLORAMBUCIL
     Indication: B-CELL SMALL LYMPHOCYTIC LYMPHOMA
     Route: 048
     Dates: start: 20201015

REACTIONS (2)
  - Peripheral swelling [None]
  - Back pain [None]

NARRATIVE: CASE EVENT DATE: 20210514
